FAERS Safety Report 4746000-3 (Version None)
Quarter: 2005Q3

REPORT INFORMATION
  Report Type: 
  Country: None (occurrence: None)
  Receive Date: 20050816
  Receipt Date: 20050805
  Transmission Date: 20060218
  Serious: Yes (Other)
  Sender: FDA-Public Use
  Company Number: US-MERCK-0508USA01412

PATIENT
  Age: 81 Year
  Sex: Female

DRUGS (1)
  1. VYTORIN [Suspect]
     Indication: HYPERCHOLESTEROLAEMIA
     Route: 048
     Dates: start: 20050604, end: 20050706

REACTIONS (2)
  - BLOOD ALKALINE PHOSPHATASE INCREASED [None]
  - PAIN IN EXTREMITY [None]
